FAERS Safety Report 8534823-4 (Version None)
Quarter: 2012Q3

REPORT INFORMATION
  Report Type: 
  Country: None (occurrence: None)
  Receive Date: 20120724
  Receipt Date: 20120717
  Transmission Date: 20120928
  Serious: Yes (Hospitalization, Disabling, Other)
  Sender: FDA-Public Use
  Company Number: US-MERCK-1203USA03483

PATIENT

DRUGS (6)
  1. FOSAMAX [Suspect]
     Indication: OSTEOPOROSIS
     Dosage: 10 MG, QD
     Route: 048
     Dates: start: 19991010, end: 20010223
  2. FOSAMAX PLUS D [Suspect]
     Indication: OSTEOPOROSIS
     Dosage: 70-2800
     Route: 048
     Dates: start: 20010224, end: 20030514
  3. FOSAMAX [Suspect]
     Dosage: 70 MG, QW
     Route: 048
     Dates: start: 20070319
  4. FOSAMAX [Suspect]
     Dosage: 70 MG, QW
     Route: 048
     Dates: start: 20010224, end: 20030514
  5. FOSAMAX PLUS D [Suspect]
     Dosage: 70-2800
     Route: 048
     Dates: start: 20061219, end: 20070110
  6. FOSAMAX [Suspect]
     Dosage: 70 MG, QW
     Route: 048
     Dates: start: 20081119, end: 20110305

REACTIONS (19)
  - HIP FRACTURE [None]
  - FEMUR FRACTURE [None]
  - ANKLE FRACTURE [None]
  - LOW TURNOVER OSTEOPATHY [None]
  - CHRONIC OBSTRUCTIVE PULMONARY DISEASE [None]
  - BLOOD CHOLESTEROL INCREASED [None]
  - ESSENTIAL HYPERTENSION [None]
  - ARTHRITIS [None]
  - ARRHYTHMIA [None]
  - GASTROOESOPHAGEAL REFLUX DISEASE [None]
  - HYPERLIPIDAEMIA [None]
  - LYMPHANGITIS [None]
  - STRESS FRACTURE [None]
  - HYPERTONIC BLADDER [None]
  - OSTEOARTHRITIS [None]
  - GENERAL SYMPTOM [None]
  - UTERINE DISORDER [None]
  - ANXIETY [None]
  - OSTEOPOROSIS [None]
